FAERS Safety Report 12528290 (Version 2)
Quarter: 2016Q3

REPORT INFORMATION
  Report Type: Report from Study
  Country: MX (occurrence: MX)
  Receive Date: 20160705
  Receipt Date: 20160718
  Transmission Date: 20161109
  Serious: No
  Sender: FDA-Public Use
  Company Number: PHHY2016MX092035

PATIENT
  Age: 69 Year
  Sex: Female
  Weight: 57 kg

DRUGS (2)
  1. EXFORGE HCT [Suspect]
     Active Substance: AMLODIPINE BESYLATE\HYDROCHLOROTHIAZIDE\VALSARTAN
     Indication: HYPERTENSION
     Dosage: 0.5 DF,BID (AMLODIPINE 5MG,HYDROCHLOROTHIAZIDE 12.5MG,VALSARTAN 160MG) (1/2 IN MORNING + 1/2 AT NIG)
     Route: 048
     Dates: start: 20160630
  2. LORATADINE. [Concomitant]
     Active Substance: LORATADINE
     Indication: STRESS
     Dosage: 1 DF, PRN, SINCE 4 YEARS AGO
     Route: 048

REACTIONS (1)
  - Wrong technique in product usage process [Not Recovered/Not Resolved]

NARRATIVE: CASE EVENT DATE: 20160630
